FAERS Safety Report 21970732 (Version 1)
Quarter: 2023Q1

REPORT INFORMATION
  Report Type: Spontaneous
  Country: US (occurrence: None)
  Receive Date: 20230209
  Receipt Date: 20230209
  Transmission Date: 20230418
  Serious: No
  Sender: FDA-Public Use
  Company Number: US-ROCHE-3281998

PATIENT
  Sex: Female

DRUGS (4)
  1. OCREVUS [Suspect]
     Active Substance: OCRELIZUMAB
     Indication: Multiple sclerosis relapse
     Route: 042
     Dates: start: 2022
  2. REBIF [Concomitant]
     Active Substance: INTERFERON BETA-1A
  3. COPAXONE [Concomitant]
     Active Substance: GLATIRAMER ACETATE
  4. AUBAGIO [Concomitant]
     Active Substance: TERIFLUNOMIDE

REACTIONS (2)
  - Oral herpes [Not Recovered/Not Resolved]
  - Illness [Recovered/Resolved]

NARRATIVE: CASE EVENT DATE: 20220101
